FAERS Safety Report 13679126 (Version 1)
Quarter: 2017Q2

REPORT INFORMATION
  Report Type: Spontaneous
  Country: CH (occurrence: CH)
  Receive Date: 20170622
  Receipt Date: 20170622
  Transmission Date: 20170830
  Serious: Yes (Death, Other)
  Sender: FDA-Public Use
  Company Number: CH-PFIZER INC-2017271160

PATIENT
  Age: 91 Year
  Sex: Female

DRUGS (12)
  1. CORDARONE [Suspect]
     Active Substance: AMIODARONE HYDROCHLORIDE
     Indication: ATRIAL FLUTTER
     Dosage: 200 MG, DAILY
     Route: 048
     Dates: start: 20170515, end: 20170515
  2. ROPIVACAINE HYDROCHLORIDE. [Interacting]
     Active Substance: ROPIVACAINE HYDROCHLORIDE
     Indication: FRACTURE PAIN
     Dosage: 288 MG, DAILY
     Route: 053
     Dates: start: 20170516, end: 20170517
  3. TOREM [Concomitant]
     Active Substance: TORSEMIDE
     Dosage: UNK
     Dates: start: 20170515, end: 20170516
  4. COSAAR [Concomitant]
     Active Substance: LOSARTAN POTASSIUM
     Dosage: UNK
     Dates: start: 20170516
  5. NITRODERM [Concomitant]
     Active Substance: NITROGLYCERIN
     Dosage: UNK
     Dates: start: 20170516, end: 20170517
  6. ELIQUIS [Concomitant]
     Active Substance: APIXABAN
     Dosage: UNK
     Dates: start: 20170515, end: 20170516
  7. BELOC ZOK [Concomitant]
     Active Substance: METOPROLOL SUCCINATE
     Dosage: UNK
     Dates: start: 20170515, end: 20170516
  8. SIMVASTATIN. [Concomitant]
     Active Substance: SIMVASTATIN
     Dosage: UNK
     Dates: start: 20170515, end: 20170516
  9. PALLADON [Concomitant]
     Active Substance: HYDROMORPHONE
     Dosage: UNK
     Route: 048
     Dates: start: 20170516
  10. DAFALGAN [Concomitant]
     Active Substance: ACETAMINOPHEN
     Dosage: UNK
     Route: 048
     Dates: start: 20170516, end: 20170516
  11. CORDARONE [Interacting]
     Active Substance: AMIODARONE HYDROCHLORIDE
     Dosage: 200 MG, 3X/DAY
     Route: 048
     Dates: start: 20170516, end: 20170516
  12. ONDANSETRON [Concomitant]
     Active Substance: ONDANSETRON
     Dosage: UNK
     Dates: start: 20170516, end: 20170516

REACTIONS (4)
  - Fall [Unknown]
  - Drug interaction [Fatal]
  - Sudden cardiac death [Fatal]
  - Femur fracture [Unknown]

NARRATIVE: CASE EVENT DATE: 20170516
